FAERS Safety Report 21434004 (Version 9)
Quarter: 2023Q1

REPORT INFORMATION
  Report Type: Spontaneous
  Country: JP (occurrence: JP)
  Receive Date: 20221010
  Receipt Date: 20230215
  Transmission Date: 20230418
  Serious: Yes (Hospitalization)
  Sender: FDA-Public Use
  Company Number: JP-AMGEN-JPNSP2022172466

PATIENT
  Age: 83 Year
  Sex: Male
  Weight: 66 kg

DRUGS (13)
  1. EVENITY [Suspect]
     Active Substance: ROMOSOZUMAB-AQQG
     Indication: Osteoporosis
     Dosage: 210 MILLIGRAM, QMO
     Route: 058
     Dates: start: 20220808, end: 20220905
  2. ROXADUSTAT [Suspect]
     Active Substance: ROXADUSTAT
     Indication: Nephrogenic anaemia
     Dosage: 50 MILLIGRAM, THRICE WEEKLY
     Route: 065
     Dates: start: 20211124, end: 2022
  3. ROXADUSTAT [Suspect]
     Active Substance: ROXADUSTAT
     Dosage: 20 MILLIGRAM, THRICE WEEKLY
     Route: 065
     Dates: start: 202203
  4. ROXADUSTAT [Suspect]
     Active Substance: ROXADUSTAT
     Dosage: 50 MILLIGRAM, THRICE WEEKLY
     Route: 065
     Dates: end: 20221005
  5. DARBEPOETIN ALFA [Concomitant]
     Active Substance: DARBEPOETIN ALFA
     Indication: Nephrogenic anaemia
     Dosage: 20 MICROGRAM, QD
     Route: 065
     Dates: start: 20221005
  6. MOBIC [Concomitant]
     Active Substance: MELOXICAM
     Indication: Pain
     Dosage: 5 MILLIGRAM, QD
     Dates: start: 20140210
  7. HERBALS [Concomitant]
     Active Substance: HERBALS
     Indication: Dementia
     Dosage: 2.5 MILLIGRAM, QD
     Dates: start: 20211225
  8. CARVEDILOL [Concomitant]
     Active Substance: CARVEDILOL
     Indication: Arrhythmia
     Dosage: 2.5 MILLIGRAM, QD
     Dates: start: 20190109
  9. MICARDIS [Concomitant]
     Active Substance: TELMISARTAN
     Indication: Hypertension
     Dosage: 40 MILLIGRAM, QD
     Dates: start: 20201125
  10. Cartin [Concomitant]
     Indication: Carnitine deficiency
     Dosage: 1000 MILLIGRAM, QD
     Dates: start: 20201216
  11. POLAPREZINC [Concomitant]
     Active Substance: POLAPREZINC
     Indication: Zinc deficiency
     Dosage: 75 MILLIGRAM, QD
     Dates: start: 20210707
  12. METHYLCOBALAMIN [Concomitant]
     Active Substance: METHYLCOBALAMIN
     Indication: Hypovitaminosis
     Dosage: 250 MICROGRAM, BID
     Dates: start: 20211013
  13. ROCALTROL [Concomitant]
     Active Substance: CALCITRIOL
     Indication: Hyperparathyroidism
     Dosage: 0.5 MICROGRAM, THRICE WEEKLY
     Dates: start: 20180630

REACTIONS (3)
  - COVID-19 [Recovered/Resolved]
  - Platelet count decreased [Recovering/Resolving]
  - Asthenia [Not Recovered/Not Resolved]

NARRATIVE: CASE EVENT DATE: 20220817
